FAERS Safety Report 6703318-2 (Version None)
Quarter: 2010Q2

REPORT INFORMATION
  Report Type: 
  Country: None (occurrence: None)
  Receive Date: 20100430
  Receipt Date: 20100422
  Transmission Date: 20101027
  Serious: Yes (Other)
  Sender: FDA-Public Use
  Company Number: US-TEVA-194059USA

PATIENT
  Sex: Female

DRUGS (2)
  1. DIVALPROEX SODIUM DELAYED-RELEASE TABLETS USP,125MG, 250MG AND 500MG [Suspect]
     Indication: BIPOLAR DISORDER
     Route: 048
     Dates: end: 20080901
  2. MIRTAZAPINE [Suspect]
     Route: 048
     Dates: end: 20080901

REACTIONS (11)
  - ARRHYTHMIA [None]
  - ASTHENIA [None]
  - BONE NEOPLASM [None]
  - DYSARTHRIA [None]
  - MUSCLE SPASMS [None]
  - NEGATIVE THOUGHTS [None]
  - PALPITATIONS [None]
  - RESTLESS LEGS SYNDROME [None]
  - SLEEP DISORDER [None]
  - SOMNOLENCE [None]
  - SUICIDE ATTEMPT [None]
